FAERS Safety Report 23518492 (Version 3)
Quarter: 2024Q2

REPORT INFORMATION
  Report Type: Spontaneous
  Country: IT (occurrence: IT)
  Receive Date: 20240213
  Receipt Date: 20240403
  Transmission Date: 20240716
  Serious: Yes (Other)
  Sender: FDA-Public Use
  Company Number: IT-002147023-NVSC2024IT027427

PATIENT
  Age: 63 Year
  Sex: Male

DRUGS (5)
  1. EVEROLIMUS [Suspect]
     Active Substance: EVEROLIMUS
     Indication: Transplant
     Dosage: UNK
     Route: 065
     Dates: start: 2013
  2. EVEROLIMUS [Suspect]
     Active Substance: EVEROLIMUS
     Indication: Hepatocellular carcinoma
  3. MYCOPHENOLATE MOFETIL [Suspect]
     Active Substance: MYCOPHENOLATE MOFETIL
     Indication: Product used for unknown indication
     Dosage: UNK
     Route: 065
  4. TACROLIMUS [Suspect]
     Active Substance: TACROLIMUS
     Dosage: LOW DOSE
     Route: 065
  5. TACROLIMUS [Suspect]
     Active Substance: TACROLIMUS
     Indication: Transplant
     Dosage: UNK
     Route: 065
     Dates: start: 2012

REACTIONS (14)
  - Biliary ischaemia [Unknown]
  - Lung squamous cell carcinoma stage II [Unknown]
  - Bronchopleural fistula [Unknown]
  - Renal impairment [Unknown]
  - Renal tubular injury [Unknown]
  - Skin cancer [Recovering/Resolving]
  - Bladder cancer [Recovering/Resolving]
  - Cholangitis [Unknown]
  - Hepatic function abnormal [Unknown]
  - Pulmonary mass [Unknown]
  - Stenosis [Unknown]
  - Jaundice [Unknown]
  - Proteinuria [Unknown]
  - Product use in unapproved indication [Unknown]

NARRATIVE: CASE EVENT DATE: 20180101
